FAERS Safety Report 22145147 (Version 1)
Quarter: 2023Q1

REPORT INFORMATION
  Report Type: Spontaneous
  Country: US (occurrence: US)
  Receive Date: 20230328
  Receipt Date: 20230328
  Transmission Date: 20230417
  Serious: No
  Sender: FDA-Public Use
  Company Number: US-TEVA-2023-US-2867888

PATIENT
  Age: 71 Year
  Sex: Female

DRUGS (1)
  1. PROAIR RESPICLICK [Suspect]
     Active Substance: ALBUTEROL SULFATE
     Indication: Product used for unknown indication
     Route: 065

REACTIONS (2)
  - Dyspnoea [Unknown]
  - COVID-19 [Unknown]
